FAERS Safety Report 12446989 (Version 2)
Quarter: 2016Q2

REPORT INFORMATION
  Report Type: Report from Study
  Country: BR (occurrence: BR)
  Receive Date: 20160608
  Receipt Date: 20160623
  Transmission Date: 20160815
  Serious: Yes (Hospitalization, Other)
  Sender: FDA-Public Use
  Company Number: PHHY2016BR077342

PATIENT
  Sex: Female
  Weight: 74 kg

DRUGS (2)
  1. ACLASTA [Suspect]
     Active Substance: ZOLEDRONIC ACID
     Indication: OSTEOPOROSIS
     Dosage: 5 MG, Q12MO
     Route: 042
  2. VITAMIN D [Concomitant]
     Active Substance: CHOLECALCIFEROL
     Indication: PRODUCT USED FOR UNKNOWN INDICATION
     Dosage: 1 DF, A WEEK
     Route: 048
     Dates: start: 201601

REACTIONS (6)
  - Back pain [Recovering/Resolving]
  - Malaise [Unknown]
  - Intervertebral disc protrusion [Not Recovered/Not Resolved]
  - Chest pain [Recovering/Resolving]
  - Osteoarthritis [Not Recovered/Not Resolved]
  - Respiratory arrest [Unknown]
